FAERS Safety Report 9027792 (Version 1)
Quarter: 2013Q1

REPORT INFORMATION
  Report Type: Report from Study
  Country: CA (occurrence: CA)
  Receive Date: 20130124
  Receipt Date: 20130124
  Transmission Date: 20140127
  Serious: Yes (Other)
  Sender: FDA-Public Use
  Company Number: CA-JNJFOC-20130107948

PATIENT
  Age: 53 Year
  Sex: Female
  Weight: 85 kg

DRUGS (22)
  1. REMICADE [Suspect]
     Indication: RHEUMATOID ARTHRITIS
     Route: 042
     Dates: start: 20130111
  2. REMICADE [Suspect]
     Indication: RHEUMATOID ARTHRITIS
     Route: 042
     Dates: start: 20121002
  3. BENADRYL [Suspect]
     Indication: INFUSION RELATED REACTION
     Route: 042
     Dates: start: 20130111
  4. PREDNISONE [Concomitant]
     Dosage: 1 1/2 TABLET TWICE A DAY
     Route: 048
     Dates: start: 20121125
  5. ALL OTHER THERAPEUTIC AGENTS [Concomitant]
     Route: 048
  6. RATIO-OMEPRAZOLE [Concomitant]
     Dosage: MORNING
     Route: 048
     Dates: start: 20121121
  7. AMLODIPINE [Concomitant]
     Route: 065
  8. SULFASALAZINE [Concomitant]
     Route: 065
  9. VITAMIN D3 [Concomitant]
     Route: 065
  10. RISEDRONATE [Concomitant]
     Route: 048
     Dates: start: 20121117
  11. ESTRACE [Concomitant]
     Dosage: AT BEDTIME
     Route: 048
     Dates: start: 20120712
  12. APO-MEDROXY [Concomitant]
     Dosage: AT BEDTIME
     Route: 065
     Dates: start: 20120712
  13. STATEX [Concomitant]
     Indication: PAIN
     Dosage: 1 TABLET 4-6 HOURS IF NEEDED
     Route: 065
     Dates: start: 20121117
  14. LIPOSIC [Concomitant]
     Dosage: 1 DROP
     Route: 047
     Dates: start: 20110729
  15. BISACODYL [Concomitant]
     Dosage: AT BEDTIME
     Route: 065
     Dates: start: 20120919
  16. SYSTANE ULTRA [Concomitant]
     Dosage: 1 DROP EVERY HOUR IN BOTH EYES
     Route: 047
     Dates: start: 20121024
  17. LACRI-LUBE [Concomitant]
     Dosage: 57.3-42.5%
     Route: 047
     Dates: start: 20121024
  18. EURO-DOCUSATE [Concomitant]
     Route: 065
     Dates: start: 20120919
  19. TYLENOL [Concomitant]
     Indication: PREMEDICATION
     Route: 048
  20. GRAVOL [Concomitant]
     Indication: PREMEDICATION
     Route: 042
  21. PRO-TRIAZIDE [Concomitant]
     Dosage: 50-25 MG TABLET, 1 TABLET ONCE DAILY AT BREAKFAST
     Route: 048
     Dates: start: 20121117
  22. LAXADAY [Concomitant]
     Indication: LAXATIVE SUPPORTIVE CARE
     Route: 065
     Dates: start: 20121027

REACTIONS (9)
  - Blood pressure increased [Recovering/Resolving]
  - Chest discomfort [Recovering/Resolving]
  - Infusion related reaction [Recovering/Resolving]
  - Swelling face [Recovering/Resolving]
  - Heart rate increased [Recovering/Resolving]
  - Back pain [Recovering/Resolving]
  - Tremor [Recovering/Resolving]
  - Erythema [Recovering/Resolving]
  - Feeling hot [Recovering/Resolving]
